FAERS Safety Report 8586001-0 (Version None)
Quarter: 2012Q3

REPORT INFORMATION
  Report Type: 
  Country: None (occurrence: None)
  Receive Date: 20120810
  Receipt Date: 20120803
  Transmission Date: 20120928
  Serious: Yes (Other)
  Sender: FDA-Public Use
  Company Number: US-ACTELION-A-US2012-64275

PATIENT
  Age: 77 Year
  Sex: Female

DRUGS (3)
  1. CALCIUM CHANNEL BLOCKERS [Concomitant]
  2. ASPIRIN [Concomitant]
  3. TRACLEER [Suspect]
     Indication: PULMONARY ARTERIAL HYPERTENSION
     Dosage: UNK
     Route: 048

REACTIONS (5)
  - WOUND INFECTION [None]
  - SURGERY [None]
  - NEOPLASM MALIGNANT [None]
  - FALL [None]
  - CELLULITIS [None]
